FAERS Safety Report 10220815 (Version 2)
Quarter: 2014Q2

REPORT INFORMATION
  Report Type: Spontaneous
  Country: GB (occurrence: GB)
  Receive Date: 20140606
  Receipt Date: 20140629
  Transmission Date: 20141212
  Serious: Yes (Hospitalization, Other)
  Sender: FDA-Public Use
  Company Number: GB-AMGEN-GBRSP2014040835

PATIENT
  Age: 63 Year
  Sex: Female
  Weight: 50 kg

DRUGS (4)
  1. PROLIA [Suspect]
     Indication: OSTEOPOROSIS POSTMENOPAUSAL
     Dosage: 60 MG, Q6MO
     Route: 058
     Dates: start: 201201
  2. TERIPARATIDE [Concomitant]
     Dosage: UNK
     Dates: start: 201405
  3. CALCICHEW D3 FORTE [Concomitant]
     Indication: OSTEOPOROSIS
     Dosage: UNK UNK, BID
     Route: 048
  4. SERETIDE [Concomitant]
     Indication: CHRONIC OBSTRUCTIVE PULMONARY DISEASE
     Dosage: INHALER

REACTIONS (2)
  - Thoracic vertebral fracture [Recovering/Resolving]
  - Vertebroplasty [Recovered/Resolved]
